FAERS Safety Report 7491329-1 (Version None)
Quarter: 2011Q2

REPORT INFORMATION
  Report Type: 
  Country: None (occurrence: None)
  Receive Date: 20110518
  Receipt Date: 20110518
  Transmission Date: 20111010
  Serious: Yes (Life-Threatening, Hospitalization, Other)
  Sender: FDA-Public Use
  Company Number: None

PATIENT
  Age: 24 Year
  Sex: Female
  Weight: 226.7985 kg

DRUGS (2)
  1. CIPROFLOXACIN [Suspect]
     Indication: TOOTHACHE
     Dosage: ONE TABLET EVERY TWELVE HOURS PO
     Route: 048
     Dates: start: 20100824, end: 20100902
  2. AZITHROMYCIN [Suspect]
     Indication: TOOTH INFECTION
     Dosage: ONE TABLET ONE DAILY PO
     Route: 048
     Dates: start: 20100831, end: 20100902

REACTIONS (16)
  - ASTHENIA [None]
  - FACIAL PAIN [None]
  - MOBILITY DECREASED [None]
  - HEART RATE INCREASED [None]
  - BLOOD PRESSURE INCREASED [None]
  - IMMUNE SYSTEM DISORDER [None]
  - SWELLING FACE [None]
  - LOCAL SWELLING [None]
  - HYPOPHAGIA [None]
  - DYSPNOEA [None]
  - ORAL PAIN [None]
  - OEDEMA MOUTH [None]
  - PYREXIA [None]
  - INFLUENZA [None]
  - NASOPHARYNGITIS [None]
  - NECK PAIN [None]
